FAERS Safety Report 5982282-8 (Version None)
Quarter: 2008Q4

REPORT INFORMATION
  Report Type: 
  Country: None (occurrence: None)
  Receive Date: 20081208
  Receipt Date: 20081124
  Transmission Date: 20090506
  Serious: Yes (Other)
  Sender: FDA-Public Use
  Company Number: CA-PURDUE-CAN_2008_0000801

PATIENT
  Age: 57 Year
  Sex: Female

DRUGS (23)
  1. OXYCONTIN [Suspect]
     Indication: DRUG USE FOR UNKNOWN INDICATION
  2. BETASERON [Suspect]
     Indication: RELAPSING-REMITTING MULTIPLE SCLEROSIS
     Dosage: 8 MIU, SEE TEXT
     Route: 058
     Dates: start: 19970905
  3. ALTACE [Concomitant]
     Indication: HYPERTENSION
     Dosage: 5 MG, UNK
     Route: 048
  4. CELEXA [Concomitant]
     Indication: ANTIDEPRESSANT THERAPY
     Dosage: 50 MG, UNK
     Route: 048
  5. ADVAIR HFA [Concomitant]
     Indication: ASTHMA
     Route: 055
  6. PLAVIX [Concomitant]
     Indication: MYOCARDIAL INFARCTION
     Dosage: 75 MG, UNK
     Route: 048
  7. CALCIUM CARBONATE [Concomitant]
     Indication: SUPPLEMENTATION THERAPY
     Dosage: 1950 MG, UNK
     Route: 048
  8. GABAPENTIN [Concomitant]
     Indication: NEURALGIA
     Dosage: 900 MG, UNK
     Route: 048
  9. PREVACID [Concomitant]
     Indication: GASTROOESOPHAGEAL REFLUX DISEASE
     Dosage: 60 MG, UNK
     Route: 048
  10. MULTI-VITAMINS [Concomitant]
     Indication: SUPPLEMENTATION THERAPY
     Route: 048
  11. OTHER COMBINATIONS OF NUTRIENTS [Concomitant]
     Indication: SUPPLEMENTATION THERAPY
     Route: 048
  12. OXYCODONE HCL [Concomitant]
     Indication: PAIN
     Dosage: 40 MG, UNK
     Route: 048
  13. VITAMIN A [Concomitant]
     Indication: SUPPLEMENTATION THERAPY
     Dosage: 400 IU, UNK
     Route: 048
  14. OXYCOCET [Concomitant]
     Indication: PAIN
  15. SEROQUEL [Concomitant]
     Indication: DEPRESSION
  16. SENNOSIDES [Concomitant]
     Indication: CONSTIPATION
  17. LORAZEPAM [Concomitant]
     Indication: INSOMNIA
  18. NAPROXEN [Concomitant]
     Indication: INFLAMMATION
  19. ZOPICLONE [Concomitant]
     Indication: INSOMNIA
  20. PANTOLOC ^NYCOMED^ [Concomitant]
     Indication: GASTROOESOPHAGEAL REFLUX DISEASE
  21. ASPIRIN [Concomitant]
     Indication: HYPERTENSION
     Dosage: 81 MG, UNK
     Route: 048
  22. VITAMIN B12                        /00091801/ [Concomitant]
     Indication: SUPPLEMENTATION THERAPY
     Dosage: 1250 MG, UNK
     Route: 048
  23. TEGRETOL [Concomitant]
     Indication: CONVULSION
     Dosage: 200 MG, UNK
     Route: 048

REACTIONS (11)
  - ABDOMINAL PAIN [None]
  - ACCIDENTAL OVERDOSE [None]
  - BLOOD PRESSURE INCREASED [None]
  - COGNITIVE DISORDER [None]
  - CYSTITIS [None]
  - HEART RATE INCREASED [None]
  - INCORRECT DOSE ADMINISTERED [None]
  - MYOCARDIAL INFARCTION [None]
  - PAIN [None]
  - PYREXIA [None]
  - TREMOR [None]
